FAERS Safety Report 16311397 (Version 1)
Quarter: 2019Q2

REPORT INFORMATION
  Report Type: Spontaneous
  Country: US (occurrence: US)
  Receive Date: 20190514
  Receipt Date: 20190514
  Transmission Date: 20190711
  Serious: Yes (Other)
  Sender: FDA-Public Use
  Company Number: US-PFIZER INC-2019199585

PATIENT
  Age: 64 Year
  Sex: Male
  Weight: 107 kg

DRUGS (9)
  1. LYRICA [Suspect]
     Active Substance: PREGABALIN
     Indication: OSTEOARTHRITIS
     Dosage: 150 MG, 2X/DAY
     Route: 048
  2. LYRICA [Suspect]
     Active Substance: PREGABALIN
     Indication: POST LAMINECTOMY SYNDROME
  3. CELEBREX [Concomitant]
     Active Substance: CELECOXIB
     Indication: OSTEOARTHRITIS
     Dosage: 400 MG, DAILY
     Route: 048
  4. GABAPENTIN. [Concomitant]
     Active Substance: GABAPENTIN
     Indication: OSTEOARTHRITIS
     Dosage: 600 MG, THREE TIMES DAILY
  5. CELEBREX [Concomitant]
     Active Substance: CELECOXIB
     Indication: OSTEONECROSIS
  6. CELEBREX [Concomitant]
     Active Substance: CELECOXIB
     Indication: POST LAMINECTOMY SYNDROME
  7. LYRICA [Suspect]
     Active Substance: PREGABALIN
     Indication: OSTEONECROSIS
     Dosage: 150 MG, ONCE DAILY
  8. GABAPENTIN. [Concomitant]
     Active Substance: GABAPENTIN
     Indication: OSTEONECROSIS
  9. GABAPENTIN. [Concomitant]
     Active Substance: GABAPENTIN
     Indication: POST LAMINECTOMY SYNDROME

REACTIONS (4)
  - Somnolence [Unknown]
  - Drug ineffective [Unknown]
  - Deep vein thrombosis [Recovered/Resolved with Sequelae]
  - Intentional product use issue [Unknown]
